FAERS Safety Report 9360892 (Version 1)
Quarter: 2013Q2

REPORT INFORMATION
  Report Type: Spontaneous
  Country: US (occurrence: None)
  Receive Date: 20130618
  Receipt Date: 20130618
  Transmission Date: 20140414
  Serious: Yes (Other)
  Sender: FDA-Public Use
  Company Number: US-1198795

PATIENT
  Age: 75 Year
  Sex: Female

DRUGS (3)
  1. PREDNISOLONE ACETATE [Suspect]
     Indication: TRANSPLANT REJECTION
     Route: 047
     Dates: start: 2008
  2. LATANOPROST [Concomitant]
  3. BRIMONIDINE TARTRATE [Concomitant]

REACTIONS (5)
  - Corneal epithelium defect [None]
  - Keratitis fungal [None]
  - Visual acuity reduced [None]
  - Scar [None]
  - Therapeutic response decreased [None]
